FAERS Safety Report 7974542-6 (Version None)
Quarter: 2011Q4

REPORT INFORMATION
  Report Type: 
  Country: None (occurrence: None)
  Receive Date: 20111213
  Receipt Date: 20111205
  Transmission Date: 20120403
  Serious: Yes (Hospitalization)
  Sender: FDA-Public Use
  Company Number: CA-ABBOTT-11P-028-0876795-00

PATIENT
  Sex: Male
  Weight: 74.2 kg

DRUGS (5)
  1. VALPROATE SODIUM [Suspect]
     Indication: PRODUCT USED FOR UNKNOWN INDICATION
     Dosage: 2 GRAMS
  2. CLOZARIL [Suspect]
     Indication: PRODUCT USED FOR UNKNOWN INDICATION
     Dosage: 20X 100MG TABLETS
     Dates: start: 20090526
  3. CLOZARIL [Concomitant]
     Dosage: AT BEDTIME
  4. IMOVANE [Concomitant]
     Indication: PRODUCT USED FOR UNKNOWN INDICATION
  5. ABILIFY [Concomitant]
     Indication: PRODUCT USED FOR UNKNOWN INDICATION

REACTIONS (2)
  - SUICIDE ATTEMPT [None]
  - OVERDOSE [None]
